FAERS Safety Report 13650820 (Version 1)
Quarter: 2017Q2

REPORT INFORMATION
  Report Type: Spontaneous
  Country: US (occurrence: US)
  Receive Date: 20170614
  Receipt Date: 20170614
  Transmission Date: 20170830
  Serious: Yes (Other)
  Sender: FDA-Public Use
  Company Number: None

PATIENT
  Age: 39 Year
  Sex: Female
  Weight: 91.71 kg

DRUGS (1)
  1. NUVARING [Suspect]
     Active Substance: ETHINYL ESTRADIOL\ETONOGESTREL
     Indication: CONTRACEPTION
     Dosage: NUVARING 0.12-0.015 1 RING PVC ... PV

REACTIONS (3)
  - Hypercoagulation [None]
  - Deep vein thrombosis [None]
  - Unevaluable event [None]

NARRATIVE: CASE EVENT DATE: 20170510
